FAERS Safety Report 9536528 (Version 4)
Quarter: 2014Q1

REPORT INFORMATION
  Report Type: Spontaneous
  Country: GB (occurrence: GB)
  Receive Date: 20130919
  Receipt Date: 20140327
  Transmission Date: 20141002
  Serious: Yes (Death)
  Sender: FDA-Public Use
  Company Number: GB-JNJFOC-20130905701

PATIENT
  Age: 50 Year
  Sex: Female
  Weight: 102 kg

DRUGS (6)
  1. DOXORUBICIN [Suspect]
     Indication: PRIMARY MEDIASTINAL LARGE B-CELL LYMPHOMA
     Route: 042
     Dates: start: 20070906, end: 20080206
  2. CYCLOPHOSPHAMIDE [Concomitant]
     Indication: PRIMARY MEDIASTINAL LARGE B-CELL LYMPHOMA
     Route: 065
     Dates: start: 20070906, end: 20080206
  3. PREDNISOLONE [Concomitant]
     Indication: PRIMARY MEDIASTINAL LARGE B-CELL LYMPHOMA
     Route: 065
     Dates: start: 20070906, end: 20080206
  4. RITUXIMAB [Concomitant]
     Indication: PRIMARY MEDIASTINAL LARGE B-CELL LYMPHOMA
     Route: 065
     Dates: start: 20070906, end: 20080206
  5. VINCRISTINE [Concomitant]
     Indication: PRIMARY MEDIASTINAL LARGE B-CELL LYMPHOMA
     Route: 065
     Dates: start: 20070906, end: 20080206
  6. RADIATION THERAPY NOS [Concomitant]
     Indication: PRODUCT USED FOR UNKNOWN INDICATION
     Route: 065

REACTIONS (3)
  - Congestive cardiomyopathy [Fatal]
  - Toxicity to various agents [Fatal]
  - Cardiac failure [Not Recovered/Not Resolved]
